FAERS Safety Report 7693780-3 (Version None)
Quarter: 2011Q3

REPORT INFORMATION
  Report Type: 
  Country: None (occurrence: None)
  Receive Date: 20110819
  Receipt Date: 20110808
  Transmission Date: 20111222
  Serious: Yes (Death)
  Sender: FDA-Public Use
  Company Number: HU-ELI_LILLY_AND_COMPANY-HU201108002964

PATIENT
  Age: 28 Year
  Sex: Female

DRUGS (2)
  1. FRONTIN [Concomitant]
     Dosage: 0.25 MG, OCCASIONALLY IN THE EVENING
  2. OLANZAPINE [Suspect]
     Indication: SCHIZOPHRENIA
     Dosage: 300 MG, EVERY 2 WEEKS
     Route: 030
     Dates: start: 20110501

REACTIONS (1)
  - DEATH [None]
